FAERS Safety Report 9162336 (Version 1)
Quarter: 2013Q1

REPORT INFORMATION
  Report Type: Spontaneous
  Country: GB (occurrence: None)
  Receive Date: 20130222
  Receipt Date: 20130222
  Transmission Date: 20140127
  Serious: Yes (Life-Threatening, Hospitalization, Other)
  Sender: FDA-Public Use
  Company Number: 2013AP002942

PATIENT
  Age: 72 Year
  Sex: Male

DRUGS (4)
  1. ALENDRONATE (ALENDRONATE SODIUM) [Suspect]
     Indication: STEROID THERAPY
     Route: 048
     Dates: start: 20121228, end: 20130105
  2. ADCAL-D3 (LEKOVIT CA) [Concomitant]
  3. OMEPRAZOLE (OMEPRAZOLE) [Concomitant]
  4. PREDNISOLONE (PREDNISOLONE) [Concomitant]

REACTIONS (1)
  - Oesophageal varices haemorrhage [None]
